FAERS Safety Report 18419712 (Version 1)
Quarter: 2020Q4

REPORT INFORMATION
  Report Type: Spontaneous
  Country: US (occurrence: US)
  Receive Date: 20201023
  Receipt Date: 20201023
  Transmission Date: 20210114
  Serious: Yes (Other)
  Sender: FDA-Public Use
  Company Number: None

PATIENT
  Sex: Male

DRUGS (1)
  1. ETODOLAC 400 MG TABS [Suspect]
     Active Substance: ETODOLAC

REACTIONS (1)
  - Urticaria [None]
